FAERS Safety Report 18455590 (Version 6)
Quarter: 2021Q3

REPORT INFORMATION
  Report Type: Report from Study
  Country: None (occurrence: US)
  Receive Date: 20201102
  Receipt Date: 20210701
  Transmission Date: 20211014
  Serious: Yes (Hospitalization, Other)
  Sender: FDA-Public Use
  Company Number: US-ABBVIE-20K-163-3630416-00

PATIENT
  Age: 50 Year
  Sex: Female
  Weight: 74.91 kg

DRUGS (5)
  1. PLAQUENIL [Suspect]
     Active Substance: HYDROXYCHLOROQUINE SULFATE
     Indication: RHEUMATOID ARTHRITIS
     Route: 065
  2. RINVOQ [Suspect]
     Active Substance: UPADACITINIB
     Route: 048
  3. RINVOQ [Suspect]
     Active Substance: UPADACITINIB
     Indication: RHEUMATOID ARTHRITIS
     Route: 048
     Dates: start: 2020, end: 202009
  4. GABAPENTIN. [Concomitant]
     Active Substance: GABAPENTIN
     Indication: INFLAMMATION
  5. NEXIUM [Concomitant]
     Active Substance: ESOMEPRAZOLE MAGNESIUM
     Indication: HIATUS HERNIA

REACTIONS (9)
  - Illness [Unknown]
  - Cataract [Not Recovered/Not Resolved]
  - Condition aggravated [Unknown]
  - Vomiting [Unknown]
  - Condition aggravated [Unknown]
  - Pain [Unknown]
  - Pancreatitis relapsing [Recovered/Resolved]
  - Hair disorder [Unknown]
  - Nail disorder [Unknown]

NARRATIVE: CASE EVENT DATE: 202008
